FAERS Safety Report 9450986 (Version 2)
Quarter: 2013Q3

REPORT INFORMATION
  Report Type: Spontaneous
  Country: TR (occurrence: TR)
  Receive Date: 20130809
  Receipt Date: 20130829
  Transmission Date: 20140515
  Serious: Yes (Hospitalization)
  Sender: FDA-Public Use
  Company Number: TR-ABBOTT-13P-161-1130198-00

PATIENT
  Age: 43 Year
  Sex: Male
  Weight: 93 kg

DRUGS (1)
  1. HUMIRA [Suspect]
     Indication: ANKYLOSING SPONDYLITIS
     Route: 058
     Dates: start: 20130712, end: 20130712

REACTIONS (1)
  - Angioedema [Recovered/Resolved]
